FAERS Safety Report 13012693 (Version 1)
Quarter: 2016Q4

REPORT INFORMATION
  Report Type: Spontaneous
  Country: US (occurrence: US)
  Receive Date: 20161209
  Receipt Date: 20161209
  Transmission Date: 20170207
  Serious: Yes (Hospitalization)
  Sender: FDA-Public Use
  Company Number: US-PROCTER+GAMBLE-GS16147352

PATIENT
  Age: 15 Year
  Sex: Male

DRUGS (2)
  1. P+GUNKNONPGCALCARBONATENPGZCAC# [Suspect]
     Active Substance: CALCIUM CARBONATE
     Dosage: 3 G ELEMENTAL CALCIUM/DAY IN DIVIDED DOSES
     Route: 048
  2. CALCITRIOL. [Suspect]
     Active Substance: CALCITRIOL
     Dosage: .75 ?G, DAILY
     Route: 048

REACTIONS (17)
  - Hypercalcaemia [Recovered/Resolved]
  - Polydipsia [Recovered/Resolved]
  - Hypertension [Recovered/Resolved]
  - Milk-alkali syndrome [Recovered/Resolved]
  - Metabolic alkalosis [Recovered/Resolved]
  - Blood bicarbonate increased [Recovered/Resolved]
  - Blood 1,25-dihydroxycholecalciferol decreased [Recovered/Resolved]
  - Blood creatinine increased [Recovered/Resolved]
  - Abdominal pain [Recovered/Resolved]
  - Bone formation decreased [Recovered/Resolved]
  - Fatigue [Recovered/Resolved]
  - Headache [Recovered/Resolved]
  - Polyuria [Recovered/Resolved]
  - Vomiting [Recovered/Resolved]
  - Blood phosphorus decreased [Recovered/Resolved]
  - Blood alkaline phosphatase decreased [Recovered/Resolved]
  - Acute kidney injury [Recovered/Resolved]
